FAERS Safety Report 7371297-3 (Version None)
Quarter: 2011Q1

REPORT INFORMATION
  Report Type: 
  Country: None (occurrence: None)
  Receive Date: 20110324
  Receipt Date: 20110315
  Transmission Date: 20110831
  Serious: Yes (Disabling)
  Sender: FDA-Public Use
  Company Number: DE-JNJFOC-20110306699

PATIENT
  Age: 55 Year
  Sex: Female

DRUGS (1)
  1. TAVANIC [Suspect]
     Indication: SINUSITIS
     Route: 048

REACTIONS (3)
  - BURSITIS [None]
  - TENDON PAIN [None]
  - TENDONITIS [None]
